FAERS Safety Report 8561163-X (Version None)
Quarter: 2012Q3

REPORT INFORMATION
  Report Type: 
  Country: None (occurrence: None)
  Receive Date: 20120802
  Receipt Date: 20120723
  Transmission Date: 20120928
  Serious: Yes (Death)
  Sender: FDA-Public Use
  Company Number: US-ACTELION-A-US2012-65631

PATIENT
  Age: 93 Year
  Sex: Female

DRUGS (7)
  1. PLAVIX [Concomitant]
  2. CALCIUM CHANNEL BLOCKERS [Concomitant]
  3. ASPIRIN [Concomitant]
  4. COUMADIN [Concomitant]
  5. DIGOXIN [Concomitant]
  6. TRACLEER [Suspect]
     Indication: PULMONARY ARTERIAL HYPERTENSION
     Dosage: UNK
     Route: 048
     Dates: start: 20080111, end: 20120503
  7. OXYGEN [Concomitant]

REACTIONS (1)
  - DEATH [None]
